FAERS Safety Report 9491582 (Version 5)
Quarter: 2015Q1

REPORT INFORMATION
  Report Type: Report from Study
  Country: US (occurrence: US)
  Receive Date: 20130830
  Receipt Date: 20150102
  Transmission Date: 20150721
  Serious: Yes (Other)
  Sender: FDA-Public Use
  Company Number: US-SANOFI-AVENTIS-2013SA076863

PATIENT
  Age: 59 Year
  Sex: Male

DRUGS (1)
  1. AUBAGIO [Suspect]
     Active Substance: TERIFLUNOMIDE
     Indication: MULTIPLE SCLEROSIS
     Dosage: TAKEN FROM: 35 DAYS AGO.
     Route: 048
     Dates: start: 20130621

REACTIONS (8)
  - Gait disturbance [Unknown]
  - Confusional state [Unknown]
  - Muscular weakness [Unknown]
  - Hypoaesthesia [Unknown]
  - Alopecia [Unknown]
  - Weight fluctuation [Unknown]
  - Multiple sclerosis [Unknown]
  - Memory impairment [Unknown]
